FAERS Safety Report 9542637 (Version 1)
Quarter: 2013Q3

REPORT INFORMATION
  Report Type: Spontaneous
  Country: DE (occurrence: DE)
  Receive Date: 20130923
  Receipt Date: 20130923
  Transmission Date: 20140515
  Serious: Yes (Hospitalization)
  Sender: FDA-Public Use
  Company Number: DE-PFIZER INC-2013267937

PATIENT
  Age: 4 Month
  Sex: Male
  Weight: 3.2 kg

DRUGS (2)
  1. VFEND [Suspect]
     Indication: LUNG INFILTRATION
     Dosage: 15 MG/KG, 2X/DAY
  2. VFEND [Suspect]
     Dosage: 8 MG/KG, 2X/DAY

REACTIONS (3)
  - Bacteraemia [Unknown]
  - Condition aggravated [Unknown]
  - Off label use [Unknown]
